FAERS Safety Report 7500554 (Version 4)
Quarter: 2013Q3

REPORT INFORMATION
  Report Type: Spontaneous
  Country: US (occurrence: US)
  Receive Date: 20100723
  Receipt Date: 20130703
  Transmission Date: 20140515
  Serious: Yes (Hospitalization, Other)
  Sender: FDA-Public Use
  Company Number: US-PFIZER INC-2009161049

PATIENT
  Age: 40 Year
  Sex: Female
  Weight: 61.22 kg

DRUGS (5)
  1. CHANTIX [Suspect]
     Indication: SMOKING CESSATION THERAPY
     Dosage: 0.5 MG DAILY
     Route: 048
     Dates: start: 20090118, end: 20090120
  2. CHANTIX [Suspect]
     Dosage: 0.5 MG, 2X/DAY
     Route: 048
     Dates: start: 20090121, end: 20090121
  3. CHANTIX [Suspect]
     Dosage: 0.5 MG, 1X/DAY
     Route: 048
     Dates: start: 20090122
  4. ACETAMINOPHEN [Concomitant]
     Indication: HEADACHE
     Dosage: UNK
  5. IBUPROFEN [Concomitant]
     Indication: HEADACHE
     Dosage: UNK

REACTIONS (5)
  - Mental disorder [Unknown]
  - Panic disorder [Unknown]
  - Panic attack [Recovered/Resolved]
  - Feeling abnormal [Recovered/Resolved]
  - Anxiety [Recovered/Resolved]
